FAERS Safety Report 12722163 (Version 4)
Quarter: 2016Q3

REPORT INFORMATION
  Report Type: Report from Study
  Country: DE (occurrence: DE)
  Receive Date: 20160907
  Receipt Date: 20160929
  Transmission Date: 20161109
  Serious: Yes (Life-Threatening, Hospitalization, Other)
  Sender: FDA-Public Use
  Company Number: PHHY2016DE118633

PATIENT
  Age: 59 Year
  Sex: Male
  Weight: 84 kg

DRUGS (6)
  1. COSENTYX [Suspect]
     Active Substance: SECUKINUMAB
     Dosage: 300 MG, ONCE EVERY 4 WEEKS
     Route: 058
     Dates: start: 20160722, end: 20160824
  2. COSENTYX [Suspect]
     Active Substance: SECUKINUMAB
     Indication: PSORIASIS
     Dosage: 300 MG, ONCE EVERY 4 WEEKS
     Route: 058
     Dates: start: 20160420
  3. COSENTYX [Suspect]
     Active Substance: SECUKINUMAB
     Dosage: 300 MG, ONCE EVERY 4 WEEKS
     Route: 058
     Dates: start: 20160519
  4. LANTUS [Concomitant]
     Active Substance: INSULIN GLARGINE
     Indication: TYPE 1 DIABETES MELLITUS
     Dosage: 0-0-0-20 IE
     Route: 058
     Dates: start: 199606
  5. CANDESARTAN [Concomitant]
     Active Substance: CANDESARTAN
     Indication: HYPERTENSION
     Dosage: 16/12.5 MG QD
     Route: 048
     Dates: start: 201604
  6. HUMALOG [Concomitant]
     Active Substance: INSULIN LISPRO
     Indication: TYPE 1 DIABETES MELLITUS
     Dosage: 1.5-1-1.5
     Route: 065

REACTIONS (17)
  - Sputum discoloured [Unknown]
  - Bronchitis chronic [Unknown]
  - Vocal cord polyp [Unknown]
  - Reflux gastritis [Unknown]
  - General physical health deterioration [Unknown]
  - Laryngitis [Unknown]
  - Cough [Unknown]
  - Emphysema [Unknown]
  - Granuloma [Unknown]
  - Lung infiltration [Not Recovered/Not Resolved]
  - Endocrine disorder [Unknown]
  - Pneumonia [Recovering/Resolving]
  - C-reactive protein increased [Recovering/Resolving]
  - Psoriatic arthropathy [Not Recovered/Not Resolved]
  - Lymphadenopathy [Unknown]
  - Dyspnoea exertional [Unknown]
  - Pleural calcification [Unknown]

NARRATIVE: CASE EVENT DATE: 20160811
